FAERS Safety Report 23645280 (Version 1)
Quarter: 2024Q1

REPORT INFORMATION
  Report Type: Spontaneous
  Country: US (occurrence: GB)
  Receive Date: 20240318
  Receipt Date: 20240318
  Transmission Date: 20240410
  Serious: Yes (Other)
  Sender: FDA-Public Use
  Company Number: US-PURDUE-USA-2024-0308427

PATIENT
  Age: 23 Year
  Sex: Female

DRUGS (2)
  1. ACETAMINOPHEN\OXYCODONE HYDROCHLORIDE [Suspect]
     Active Substance: ACETAMINOPHEN\OXYCODONE HYDROCHLORIDE
     Indication: Product used for unknown indication
     Dosage: UNK
     Route: 048
  2. NALOXONE [Suspect]
     Active Substance: NALOXONE
     Indication: Unresponsive to stimuli
     Dosage: UNK
     Route: 042

REACTIONS (3)
  - Unresponsive to stimuli [Recovering/Resolving]
  - CHANTER syndrome [Unknown]
  - Cardiac arrest [Unknown]
